FAERS Safety Report 9756676 (Version 2)
Quarter: 2014Q2

REPORT INFORMATION
  Report Type: Spontaneous
  Country: JP (occurrence: JP)
  Receive Date: 20131213
  Receipt Date: 20140421
  Transmission Date: 20141212
  Serious: Yes (Death)
  Sender: FDA-Public Use
  Company Number: JP-MALLINCKRODT-T201305095

PATIENT
  Age: 66 Year
  Sex: Female
  Weight: 47.8 kg

DRUGS (9)
  1. METHADONE [Suspect]
     Indication: CANCER PAIN
     Dosage: 10 MG, (30 MG DAILY DOSE)
     Route: 050
     Dates: start: 20131125, end: 20131202
  2. METHADONE [Suspect]
     Dosage: 15 MG, (45 MG DAILY DOSE)
     Route: 050
     Dates: start: 20131202, end: 20131204
  3. DORMICUM [Suspect]
     Indication: SEDATION
     Dosage: 1 DF, UNK
     Route: 051
     Dates: start: 20131118, end: 20131123
  4. DORMICUM [Suspect]
     Dosage: 2 DF, UNK
     Route: 051
     Dates: start: 20131124, end: 20131204
  5. DECADRON [Concomitant]
     Dosage: 1 MG, UNK
     Route: 048
     Dates: start: 20131127, end: 20131130
  6. DECADRON [Concomitant]
     Dosage: 0.5 MG, UNK
     Route: 048
     Dates: start: 20131201, end: 20131204
  7. GASTER [Concomitant]
     Dosage: 40 MG, UNK
     Route: 051
     Dates: start: 20131112, end: 20131204
  8. OXYFAST [Concomitant]
     Indication: SEDATION
     Dosage: 200 MG, UNK
     Route: 051
     Dates: start: 20131111, end: 20131204
  9. DUROTEP [Concomitant]
     Indication: SEDATION
     Dosage: UNK
     Route: 062
     Dates: end: 20131204

REACTIONS (2)
  - Uterine cancer [Fatal]
  - Oxygen saturation decreased [Recovering/Resolving]
